FAERS Safety Report 9467430 (Version 3)
Quarter: 2020Q4

REPORT INFORMATION
  Report Type: Spontaneous
  Country: CA (occurrence: CA)
  Receive Date: 20130821
  Receipt Date: 20201127
  Transmission Date: 20210114
  Serious: Yes (Hospitalization)
  Sender: FDA-Public Use
  Company Number: CA-ROCHE-1261458

PATIENT
  Age: 63 Year
  Sex: Female

DRUGS (21)
  1. IBUPROFEN. [Suspect]
     Active Substance: IBUPROFEN
     Indication: OSTEOARTHRITIS
     Dosage: THERAPY DURATION: 390 DAYS
     Route: 048
  2. ACETAMINOPHEN;CAFFEINE;CODEINE [Concomitant]
  3. DIOVAN [Concomitant]
     Active Substance: VALSARTAN
     Route: 065
  4. HYDROXYCHLOROQUINE [Concomitant]
     Active Substance: HYDROXYCHLOROQUINE
     Route: 065
  5. K-DUR [Concomitant]
     Active Substance: POTASSIUM CHLORIDE
     Route: 065
  6. LOPRESOR [Concomitant]
     Active Substance: METOPROLOL
  7. NEXIUM [Concomitant]
     Active Substance: ESOMEPRAZOLE MAGNESIUM
     Route: 065
  8. TYLENOL [Concomitant]
     Active Substance: ACETAMINOPHEN
     Route: 065
  9. ACETAMINOPHEN;CODEINE [Concomitant]
     Active Substance: ACETAMINOPHEN\CODEINE PHOSPHATE
     Route: 065
  10. WARFARIN [Suspect]
     Active Substance: WARFARIN
     Indication: ATRIAL FIBRILLATION
     Dosage: THERAPY DURATION: 10 DAYS
     Route: 048
  11. HYDROCHLOROTHIAZIDE. [Concomitant]
     Active Substance: HYDROCHLOROTHIAZIDE
     Route: 065
  12. KETODERM (CANADA) [Concomitant]
     Dosage: 2%
     Route: 065
  13. PREVACID [Concomitant]
     Active Substance: LANSOPRAZOLE
     Route: 065
  14. HYDROXYCHLOROQUINE SULFATE. [Concomitant]
     Active Substance: HYDROXYCHLOROQUINE SULFATE
  15. EMPRACET [Concomitant]
  16. NAPROXEN. [Suspect]
     Active Substance: NAPROXEN
     Indication: OSTEOARTHRITIS
     Dosage: THERAPY DURATION: 390 DAYS
     Route: 048
  17. COUMADINE [Concomitant]
     Active Substance: WARFARIN SODIUM
     Route: 065
  18. ADALAT CC [Concomitant]
     Active Substance: NIFEDIPINE
     Route: 065
  19. HEPARIN SODIUM. [Concomitant]
     Active Substance: HEPARIN SODIUM
     Route: 042
  20. KETOCONAZOLE. [Concomitant]
     Active Substance: KETOCONAZOLE
  21. CELEBREX [Suspect]
     Active Substance: CELECOXIB
     Indication: OSTEOARTHRITIS
     Dosage: THERAPY DURATION: 25 DAYS
     Route: 048

REACTIONS (3)
  - Abdominal wall haematoma [Not Recovered/Not Resolved]
  - Abdominal pain [Not Recovered/Not Resolved]
  - Haemoglobin decreased [Not Recovered/Not Resolved]
